FAERS Safety Report 14090563 (Version 1)
Quarter: 2017Q4

REPORT INFORMATION
  Report Type: Report from Study
  Country: FR (occurrence: FR)
  Receive Date: 20171015
  Receipt Date: 20171015
  Transmission Date: 20180321
  Serious: Yes (Other)
  Sender: FDA-Public Use
  Company Number: FR-BRISTOL-MYERS SQUIBB COMPANY-BMS-2017-092430

PATIENT
  Age: 56 Year
  Sex: Female

DRUGS (2)
  1. IPILIMUMAB [Suspect]
     Active Substance: IPILIMUMAB
     Indication: RENAL CELL CARCINOMA
     Dosage: UNK
     Route: 065
  2. NIVOLUMAB [Suspect]
     Active Substance: NIVOLUMAB
     Indication: RENAL CELL CARCINOMA
     Dosage: UNK
     Route: 065

REACTIONS (5)
  - Thyroiditis [Recovering/Resolving]
  - Sjogren^s syndrome [Recovering/Resolving]
  - Colitis [Recovering/Resolving]
  - Ankylosing spondylitis [Recovering/Resolving]
  - Product use in unapproved indication [Unknown]
